FAERS Safety Report 7717463-6 (Version None)
Quarter: 2011Q3

REPORT INFORMATION
  Report Type: 
  Country: None (occurrence: None)
  Receive Date: 20110823
  Receipt Date: 20110505
  Transmission Date: 20111222
  Serious: Yes (Hospitalization)
  Sender: FDA-Public Use
  Company Number: 20110505CINRY1997

PATIENT
  Age: 35 Year
  Sex: Female

DRUGS (4)
  1. LOVENOX [Concomitant]
  2. CINRYZE [Suspect]
     Indication: HEREDITARY ANGIOEDEMA
     Dosage: (1000 UNIT, 1 IN 3 D), INTRAVENOUS
     Route: 042
     Dates: start: 20101101
  3. CINRYZE [Suspect]
     Indication: PROPHYLAXIS
     Dosage: (1000 UNIT, 1 IN 3 D), INTRAVENOUS
     Route: 042
     Dates: start: 20101101
  4. COUMADIN [Concomitant]

REACTIONS (5)
  - STRESS [None]
  - ANGIOEDEMA [None]
  - HEREDITARY ANGIOEDEMA [None]
  - THROMBOSIS IN DEVICE [None]
  - OFF LABEL USE [None]
